FAERS Safety Report 11880595 (Version 6)
Quarter: 2016Q3

REPORT INFORMATION
  Report Type: Spontaneous
  Country: US (occurrence: US)
  Receive Date: 20151230
  Receipt Date: 20160826
  Transmission Date: 20161109
  Serious: Yes (Hospitalization, Other)
  Sender: FDA-Public Use
  Company Number: US-GLAXOSMITHKLINE-US2015181618

PATIENT
  Age: 51 Year
  Sex: Female
  Weight: 105 kg

DRUGS (35)
  1. AVANDAMET [Suspect]
     Active Substance: METFORMIN HYDROCHLORIDE\ROSIGLITAZONE MALEATE
     Indication: DIABETES MELLITUS
     Dosage: UNKNOWN
     Route: 065
  2. ALBUTEROL SULFATE. [Suspect]
     Active Substance: ALBUTEROL SULFATE
     Indication: PRODUCT USED FOR UNKNOWN INDICATION
     Dosage: UNK, QID
     Route: 048
     Dates: start: 20141015, end: 20160217
  3. CIPRO [Concomitant]
     Active Substance: CIPROFLOXACIN HYDROCHLORIDE
     Indication: PRODUCT USED FOR UNKNOWN INDICATION
     Dosage: 500 MG, QD
     Route: 048
     Dates: start: 20150804, end: 20160217
  4. TRAMADOL. [Concomitant]
     Active Substance: TRAMADOL
     Indication: PRODUCT USED FOR UNKNOWN INDICATION
     Route: 065
  5. METFORMIN [Suspect]
     Active Substance: METFORMIN HYDROCHLORIDE
     Indication: PRODUCT USED FOR UNKNOWN INDICATION
     Dosage: UNK
     Route: 065
  6. LEVOTHYROXINE. [Suspect]
     Active Substance: LEVOTHYROXINE
     Indication: AUTOIMMUNE THYROIDITIS
     Dosage: 125 MCG DAILY
     Route: 065
  7. LEVOTHROID [Suspect]
     Active Substance: LEVOTHYROXINE SODIUM
     Indication: GOITRE
     Dosage: 112 MCG
     Route: 065
  8. ALPRAZOLAM. [Concomitant]
     Active Substance: ALPRAZOLAM
     Indication: PRODUCT USED FOR UNKNOWN INDICATION
     Route: 065
  9. LASIX [Concomitant]
     Active Substance: FUROSEMIDE
     Indication: PRODUCT USED FOR UNKNOWN INDICATION
     Dosage: 20 MG, QD
     Route: 048
  10. HYDROXYZINE HYDROCHLORIDE. [Concomitant]
     Active Substance: HYDROXYZINE HYDROCHLORIDE
     Indication: PRURITUS
     Dosage: 25 MG, QID
     Route: 048
     Dates: start: 20141104, end: 20160217
  11. GLUCOPHAGE XR [Suspect]
     Active Substance: METFORMIN HYDROCHLORIDE
     Indication: TYPE 2 DIABETES MELLITUS
     Dosage: 1000 MG, BID
     Route: 065
  12. LEVEMIR [Suspect]
     Active Substance: INSULIN DETEMIR
     Indication: TYPE 2 DIABETES MELLITUS
     Dosage: UNK
  13. SYNTHROID [Concomitant]
     Active Substance: LEVOTHYROXINE SODIUM
     Indication: PRODUCT USED FOR UNKNOWN INDICATION
     Dosage: 0.1 MG, UNK
     Route: 065
     Dates: start: 20141007
  14. DIOVAN [Concomitant]
     Active Substance: VALSARTAN
     Indication: PRODUCT USED FOR UNKNOWN INDICATION
     Route: 065
  15. AVANDIA [Suspect]
     Active Substance: ROSIGLITAZONE MALEATE
     Indication: DIABETES MELLITUS
     Dosage: UNK
     Route: 065
     Dates: start: 1992
  16. LEVOTHYROXINE. [Suspect]
     Active Substance: LEVOTHYROXINE
     Dosage: 100 MG, 1D
     Route: 065
  17. NOVOLOG [Suspect]
     Active Substance: INSULIN ASPART
     Indication: TYPE 2 DIABETES MELLITUS
     Dosage: UNK
     Route: 065
  18. LIPITOR [Concomitant]
     Active Substance: ATORVASTATIN CALCIUM
     Indication: PRODUCT USED FOR UNKNOWN INDICATION
     Dosage: 10 MG, UNK
     Route: 048
     Dates: start: 20150804
  19. NOVOLOG [Concomitant]
     Active Substance: INSULIN ASPART
     Indication: PRODUCT USED FOR UNKNOWN INDICATION
     Dosage: 6-15 UNITS, TID
     Route: 058
  20. LEVOTHYROXINE. [Concomitant]
     Active Substance: LEVOTHYROXINE
     Indication: PRODUCT USED FOR UNKNOWN INDICATION
     Route: 065
  21. LEVOTHROID [Suspect]
     Active Substance: LEVOTHYROXINE SODIUM
     Indication: AUTOIMMUNE THYROIDITIS
     Dosage: 125 MCG
     Route: 065
  22. OMEPRAZOLE. [Concomitant]
     Active Substance: OMEPRAZOLE
     Indication: PRODUCT USED FOR UNKNOWN INDICATION
     Dosage: 20 MG, QD
     Route: 048
     Dates: start: 20150204
  23. XANAX [Concomitant]
     Active Substance: ALPRAZOLAM
     Indication: ANXIETY
     Dosage: 1 MG, BID AS NEEDED
     Route: 048
     Dates: start: 20160128
  24. FUROSEMIDE. [Concomitant]
     Active Substance: FUROSEMIDE
     Indication: PRODUCT USED FOR UNKNOWN INDICATION
     Route: 065
  25. LEVOTHYROXINE. [Suspect]
     Active Substance: LEVOTHYROXINE
     Indication: GOITRE
     Dosage: 112 MG, 1D
     Route: 065
  26. LEVOTHROID [Suspect]
     Active Substance: LEVOTHYROXINE SODIUM
     Dosage: 100 MCG
     Route: 065
  27. LEVEMIR [Concomitant]
     Active Substance: INSULIN DETEMIR
     Indication: PRODUCT USED FOR UNKNOWN INDICATION
     Dosage: 30 IU, QD
     Route: 058
     Dates: start: 20151027
  28. CLONIDINE. [Concomitant]
     Active Substance: CLONIDINE
     Indication: PRODUCT USED FOR UNKNOWN INDICATION
     Dosage: 0.1 MG, BID
     Route: 048
     Dates: start: 20141007, end: 20160217
  29. DIOVAN HCT [Concomitant]
     Active Substance: HYDROCHLOROTHIAZIDE\VALSARTAN
     Indication: PRODUCT USED FOR UNKNOWN INDICATION
     Route: 065
  30. MECLIZINE [Concomitant]
     Active Substance: MECLIZINE HYDROCHLORIDE
     Indication: PRODUCT USED FOR UNKNOWN INDICATION
     Dosage: 25 MG, UNK
     Route: 048
     Dates: start: 20141007
  31. LOSARTAN POTASSIUM. [Concomitant]
     Active Substance: LOSARTAN POTASSIUM
     Indication: PRODUCT USED FOR UNKNOWN INDICATION
     Dosage: 50 MG, QD
     Route: 048
     Dates: start: 20150804
  32. CLINDAMYCIN [Concomitant]
     Active Substance: CLINDAMYCIN\CLINDAMYCIN PHOSPHATE
     Indication: PRODUCT USED FOR UNKNOWN INDICATION
     Dosage: 300 MG, TID
     Route: 048
     Dates: start: 20151121
  33. AMOXICILLIN. [Concomitant]
     Active Substance: AMOXICILLIN
     Indication: PRODUCT USED FOR UNKNOWN INDICATION
     Dosage: 500 MG, TID
     Route: 048
     Dates: start: 20151201, end: 20160217
  34. IBUPROFEN. [Concomitant]
     Active Substance: IBUPROFEN
     Indication: PRODUCT USED FOR UNKNOWN INDICATION
     Route: 065
  35. ASPIRIN. [Concomitant]
     Active Substance: ASPIRIN
     Indication: PRODUCT USED FOR UNKNOWN INDICATION
     Route: 065

REACTIONS (69)
  - Diabetes mellitus inadequate control [Unknown]
  - Chest pain [Unknown]
  - Erythema [Unknown]
  - Wound [Unknown]
  - Hypertension [Unknown]
  - Pneumonia [Unknown]
  - Skin ulcer [Unknown]
  - Bronchitis [Unknown]
  - Palpitations [Unknown]
  - Rash papular [Unknown]
  - Rash pruritic [Unknown]
  - Weight increased [Unknown]
  - Cardiac failure congestive [Not Recovered/Not Resolved]
  - Cellulitis [Unknown]
  - Mitral valve incompetence [Unknown]
  - Local swelling [Unknown]
  - Asthenia [Unknown]
  - Wheezing [Unknown]
  - Hypoaesthesia [Unknown]
  - Acute pulmonary oedema [Unknown]
  - Dyspnoea [Unknown]
  - Pain in extremity [Unknown]
  - Joint swelling [Unknown]
  - Fatigue [Unknown]
  - Pyrexia [Unknown]
  - Rhinitis allergic [Unknown]
  - Pruritus [Unknown]
  - Rash erythematous [Unknown]
  - Blood glucose decreased [Unknown]
  - Hypersensitivity [Unknown]
  - Left ventricular hypertrophy [Unknown]
  - Dehydration [Unknown]
  - Oxygen supplementation [Unknown]
  - Pain [Unknown]
  - Muscle spasms [Unknown]
  - Tonsillar disorder [Unknown]
  - Diabetic neuropathy [Unknown]
  - Skin lesion [Unknown]
  - Myocardial ischaemia [Unknown]
  - Type 2 diabetes mellitus [Unknown]
  - Paranoia [Unknown]
  - Respiratory disorder [Unknown]
  - Reaction to drug excipients [Unknown]
  - Anxiety [Unknown]
  - Depression [Unknown]
  - Rash [Unknown]
  - Drug dose omission [Unknown]
  - Hypoglycaemia [Unknown]
  - Infection [Unknown]
  - Peripheral swelling [Unknown]
  - Back pain [Unknown]
  - Intervertebral disc degeneration [Unknown]
  - Wound infection [Unknown]
  - Renal failure [Unknown]
  - Tricuspid valve incompetence [Unknown]
  - Nasal congestion [Unknown]
  - Cough [Unknown]
  - Oedema mucosal [Unknown]
  - Pharyngeal erythema [Unknown]
  - Blood glucose fluctuation [Unknown]
  - Foot operation [Unknown]
  - Paraesthesia [Unknown]
  - Cardiomegaly [Unknown]
  - Blood glucose increased [Unknown]
  - Diabetic retinopathy [Unknown]
  - Disturbance in attention [Unknown]
  - Chest discomfort [Unknown]
  - Rhinorrhoea [Unknown]
  - Visual acuity reduced [Unknown]

NARRATIVE: CASE EVENT DATE: 20041128
